FAERS Safety Report 5353180-8 (Version None)
Quarter: 2007Q2

REPORT INFORMATION
  Report Type: 
  Country: None (occurrence: None)
  Receive Date: 20070608
  Receipt Date: 20070525
  Transmission Date: 20071010
  Serious: Yes (Hospitalization)
  Sender: FDA-Public Use
  Company Number: T200700601

PATIENT
  Age: 48 Year
  Sex: Male
  Weight: 80.7 kg

DRUGS (15)
  1. METHADOSE [Suspect]
     Indication: PAIN
     Dosage: 20 MG, BID, ORAL
     Route: 048
     Dates: start: 20060110
  2. CELEBREX [Suspect]
     Indication: PAIN
     Dosage: 100 MG, BID, ORAL
     Route: 048
     Dates: start: 20060110, end: 20060215
  3. SU 11248(SU 11248) 50 MG [Suspect]
     Indication: METASTATIC RENAL CELL CARCINOMA
     Dosage: SEE IMAGE
     Route: 048
     Dates: start: 20060124, end: 20060214
  4. SU 11248(SU 11248) 50 MG [Suspect]
     Indication: METASTATIC RENAL CELL CARCINOMA
     Dosage: SEE IMAGE
     Route: 048
     Dates: start: 20060307
  5. PERCOCET [Suspect]
     Indication: PAIN
     Dosage: 5/325MG, 2 TABLETS, EVERY 4 HRS
     Dates: start: 20060110, end: 20060215
  6. BACLOFEN [Suspect]
     Dosage: 10 MG, BID, ORAL
     Route: 048
     Dates: start: 20060110, end: 20060215
  7. MINOCYCLINE HCL [Concomitant]
  8. LEXAPRO [Concomitant]
  9. PROTONIX /01263201/ (PANTOPRAZOLE) [Concomitant]
  10. AMBIEN [Concomitant]
  11. NEURONTIN [Concomitant]
  12. COMPAZINE /00013302/ (PROCHLORPERAZINE EDISYLATE) [Concomitant]
  13. /00142201/ (SENNA ALEXANDRINA) [Concomitant]
  14. LACTULOSE [Concomitant]
  15. LOCACE (DOCUSATE SODIUM) [Concomitant]

REACTIONS (4)
  - CONFUSIONAL STATE [None]
  - DISORIENTATION [None]
  - HYPERTENSION [None]
  - TOXIC INDUCED ENCEPHALOPATHY [None]
